FAERS Safety Report 23514772 (Version 2)
Quarter: 2024Q1

REPORT INFORMATION
  Report Type: Spontaneous
  Country: US (occurrence: US)
  Receive Date: 20240212
  Receipt Date: 20240227
  Transmission Date: 20240410
  Serious: Yes (Other)
  Sender: FDA-Public Use
  Company Number: US-BEH-2024168429

PATIENT
  Age: 36 Year
  Sex: Male

DRUGS (7)
  1. HUMATE-P [Suspect]
     Active Substance: HUMAN COAGULATION FACTOR VIII/VON WILLEBRAND FACTOR COMPLEX
     Indication: Von Willebrand^s disease
     Dosage: 4759 INTERNATIONAL UNIT, TID
     Route: 042
     Dates: start: 20230305
  2. HUMATE-P [Suspect]
     Active Substance: HUMAN COAGULATION FACTOR VIII/VON WILLEBRAND FACTOR COMPLEX
     Dosage: 5135 INTERNATIONAL UNIT, TID
     Route: 042
     Dates: start: 20230305
  3. HUMATE-P [Suspect]
     Active Substance: HUMAN COAGULATION FACTOR VIII/VON WILLEBRAND FACTOR COMPLEX
     Dosage: UNK, PRN
     Route: 065
  4. SODIUM CHLORIDE [Concomitant]
     Active Substance: SODIUM CHLORIDE
  5. OXYCODONE/APAP [Concomitant]
     Active Substance: ACETAMINOPHEN\OXYCODONE HYDROCHLORIDE
  6. HYDROCODONE BITARTRATE AND ACETAMINOPHEN [Concomitant]
     Active Substance: ACETAMINOPHEN\HYDROCODONE BITARTRATE
  7. METOPROLOL TARTRATE [Concomitant]
     Active Substance: METOPROLOL TARTRATE

REACTIONS (6)
  - Epistaxis [Unknown]
  - Mouth haemorrhage [Unknown]
  - Epistaxis [Unknown]
  - Mouth haemorrhage [Unknown]
  - Gastrointestinal haemorrhage [Not Recovered/Not Resolved]
  - Injury [Unknown]

NARRATIVE: CASE EVENT DATE: 20240101
